FAERS Safety Report 8351992-X (Version None)
Quarter: 2012Q2

REPORT INFORMATION
  Report Type: 
  Country: None (occurrence: None)
  Receive Date: 20120511
  Receipt Date: 20120503
  Transmission Date: 20120825
  Serious: Yes (Hospitalization, Other)
  Sender: FDA-Public Use
  Company Number: US-BAYER-2011-111088

PATIENT
  Age: 31 Year
  Sex: Female
  Weight: 126.98 kg

DRUGS (1)
  1. YASMIN [Suspect]
     Indication: PREMENSTRUAL SYNDROME
     Dosage: UNK
     Dates: start: 20040601, end: 20070501

REACTIONS (8)
  - INJURY [None]
  - ANXIETY [None]
  - GENERAL PHYSICAL HEALTH DETERIORATION [None]
  - SCAR [None]
  - PAIN [None]
  - CHOLECYSTITIS ACUTE [None]
  - GALLBLADDER INJURY [None]
  - EMOTIONAL DISTRESS [None]
